FAERS Safety Report 11353258 (Version 1)
Quarter: 2015Q3

REPORT INFORMATION
  Report Type: Spontaneous
  Country: US (occurrence: US)
  Receive Date: 20150807
  Receipt Date: 20150807
  Transmission Date: 20151125
  Serious: No
  Sender: FDA-Public Use
  Company Number: US-JNJFOC-20150310510

PATIENT
  Sex: Female
  Weight: 66.68 kg

DRUGS (7)
  1. VITAMIN E [Concomitant]
     Active Substance: .ALPHA.-TOCOPHEROL
     Indication: HOT FLUSH
     Dosage: INTERVAL: 2 WEEKS
     Route: 065
  2. WOMENS ROGAINE UNSCENTED [Suspect]
     Active Substance: MINOXIDIL
     Route: 061
  3. WOMENS ROGAINE UNSCENTED [Suspect]
     Active Substance: MINOXIDIL
     Indication: ALOPECIA
     Dosage: MORE THAN A HALF A CAPFUL
     Route: 061
  4. FLONASE [Concomitant]
     Active Substance: FLUTICASONE PROPIONATE
     Indication: NASAL OEDEMA
     Dosage: INTERVAL: 2 MONTHS
     Route: 065
     Dates: start: 201501
  5. BIOTIN [Concomitant]
     Active Substance: BIOTIN
     Indication: HAIR GROWTH ABNORMAL
     Dosage: INTERVAL: 3 WEEKS
     Route: 065
     Dates: start: 201502
  6. VITAMIN D [Concomitant]
     Active Substance: CHOLECALCIFEROL
     Indication: VITAMIN D DEFICIENCY
     Dosage: INTERVAL: 2 MONTHS
  7. VOLTAREN [Concomitant]
     Active Substance: DICLOFENAC SODIUM
     Indication: PAIN IN EXTREMITY
     Route: 065
     Dates: start: 20150215

REACTIONS (5)
  - Amenorrhoea [Unknown]
  - Alopecia [Not Recovered/Not Resolved]
  - Hot flush [Unknown]
  - Chills [Unknown]
  - Incorrect dose administered [Unknown]
